FAERS Safety Report 5148922-0 (Version None)
Quarter: 2006Q4

REPORT INFORMATION
  Report Type: 
  Country: None (occurrence: None)
  Receive Date: 20061113
  Receipt Date: 20061101
  Transmission Date: 20070319
  Serious: Yes (Death, Hospitalization, Other)
  Sender: FDA-Public Use
  Company Number: US-AMGEN-US198838

PATIENT
  Age: 36 Year
  Sex: Female

DRUGS (1)
  1. EPOGEN [Suspect]
     Indication: ANAEMIA
     Dates: start: 20060701, end: 20060801

REACTIONS (2)
  - APLASIA PURE RED CELL [None]
  - SEPSIS [None]
